FAERS Safety Report 9037037 (Version 1)
Quarter: 2012Q4

REPORT INFORMATION
  Report Type: Spontaneous
  Country: DE (occurrence: None)
  Receive Date: 20121221
  Receipt Date: 20121221
  Transmission Date: 20130627
  Serious: Yes (Hospitalization, Other)
  Sender: FDA-Public Use
  Company Number: 2012034249

PATIENT
  Age: 21 Year
  Sex: Male

DRUGS (4)
  1. FIBROGAMMIN P [Suspect]
     Indication: PREOPERATIVE CARE
     Route: 042
     Dates: start: 20121207, end: 20121207
  2. FIBROGAMMIN P [Suspect]
     Indication: DENTAL TREATMENT
     Route: 042
     Dates: start: 20121207, end: 20121207
  3. ANTIHEMOPHILIC FACTOR HUMAN [Suspect]
     Indication: PREOPERATIVE CARE
     Route: 042
     Dates: start: 20121207, end: 20121207
  4. ANTIHEMOPHILIC FACTOR HUMAN [Suspect]
     Indication: DENTAL TREATMENT
     Route: 042
     Dates: start: 20121207, end: 20121207

REACTIONS (5)
  - Flushing [None]
  - Paraesthesia [None]
  - Dysgeusia [None]
  - Tongue discolouration [None]
  - Erythema [None]
